FAERS Safety Report 12911462 (Version 1)
Quarter: 2016Q4

REPORT INFORMATION
  Report Type: Spontaneous
  Country: US (occurrence: US)
  Receive Date: 20161102
  Receipt Date: 20161102
  Transmission Date: 20170207
  Serious: Yes (Other)
  Sender: FDA-Public Use
  Company Number: None

PATIENT
  Age: 77 Year
  Sex: Male
  Weight: 74.25 kg

DRUGS (13)
  1. VITAMIN D [Concomitant]
     Active Substance: CHOLECALCIFEROL
  2. ANORO ELLIPTA [Suspect]
     Active Substance: UMECLIDINIUM BROMIDE\VILANTEROL TRIFENATATE
     Indication: RESPIRATORY DISORDER
     Dosage: QUANTITY:60 PUFF(S);?
     Route: 055
     Dates: start: 20161003, end: 20161019
  3. ASPIRIN. [Concomitant]
     Active Substance: ASPIRIN
  4. ACETAMINOPHEN. [Concomitant]
     Active Substance: ACETAMINOPHEN
  5. TATSULOSIN [Concomitant]
  6. TRAZDONE [Concomitant]
     Active Substance: TRAZODONE HYDROCHLORIDE
  7. ATROVASTATIN [Concomitant]
     Active Substance: ATORVASTATIN CALCIUM
  8. FISH OIL [Concomitant]
     Active Substance: FISH OIL
  9. C-PAP MACHINE [Concomitant]
     Active Substance: DEVICE
  10. LISINOPRIL. [Concomitant]
     Active Substance: LISINOPRIL
  11. ACIDOPHILUS [Concomitant]
     Active Substance: LACTOBACILLUS ACIDOPHILUS
  12. METOPROLOL. [Concomitant]
     Active Substance: METOPROLOL
  13. OMEPRAZOLE. [Concomitant]
     Active Substance: OMEPRAZOLE

REACTIONS (2)
  - Swelling face [None]
  - Local swelling [None]

NARRATIVE: CASE EVENT DATE: 20161019
